FAERS Safety Report 11301553 (Version 1)
Quarter: 2015Q3

REPORT INFORMATION
  Report Type: Spontaneous
  Country: US (occurrence: US)
  Receive Date: 20150722
  Receipt Date: 20150722
  Transmission Date: 20151125
  Serious: No
  Sender: FDA-Public Use
  Company Number: US-ELI_LILLY_AND_COMPANY-US201003000030

PATIENT
  Sex: Female

DRUGS (1)
  1. HUMATROPE [Suspect]
     Active Substance: SOMATROPIN
     Dosage: 0.2 MG, UNK
     Dates: start: 20091223

REACTIONS (5)
  - Headache [Unknown]
  - Incorrect dose administered [Unknown]
  - Vision blurred [Unknown]
  - Weight increased [Unknown]
  - Fluid retention [Unknown]
